FAERS Safety Report 22540061 (Version 1)
Quarter: 2023Q2

REPORT INFORMATION
  Report Type: Spontaneous
  Country: US (occurrence: None)
  Receive Date: 20230608
  Receipt Date: 20230608
  Transmission Date: 20230722
  Serious: Yes (Death)
  Sender: FDA-Public Use
  Company Number: None

PATIENT
  Age: 71 Year
  Sex: Female

DRUGS (2)
  1. ASPIRIN [Suspect]
     Active Substance: ASPIRIN
  2. ENOXAPARIN [Suspect]
     Active Substance: ENOXAPARIN

REACTIONS (2)
  - Subarachnoid haemorrhage [None]
  - Cerebral artery occlusion [None]

NARRATIVE: CASE EVENT DATE: 20230227
